FAERS Safety Report 24569469 (Version 6)
Quarter: 2025Q3

REPORT INFORMATION
  Report Type: Report from Study
  Country: KR (occurrence: KR)
  Receive Date: 20241031
  Receipt Date: 20250701
  Transmission Date: 20251021
  Serious: Yes (Hospitalization, Other)
  Sender: ABBVIE
  Company Number: KR-ABBVIE-5984786

PATIENT
  Age: 58 Year
  Sex: Male
  Weight: 74 kg

DRUGS (8)
  1. RINVOQ [Suspect]
     Active Substance: UPADACITINIB
     Indication: Rheumatoid arthritis
     Dosage: FORM STRENGTH: 15 MILLIGRAM
     Route: 048
     Dates: start: 20241021
  2. METHOTREXATE [Concomitant]
     Active Substance: METHOTREXATE
     Indication: Rheumatoid arthritis
     Dosage: (RHEUMATREX. FOLEX)
     Dates: start: 20240527
  3. METHOTREXATE [Concomitant]
     Active Substance: METHOTREXATE
     Indication: Rheumatoid arthritis
     Dates: start: 20240429, end: 20240526
  4. GASTER [Concomitant]
     Active Substance: FAMOTIDINE
     Indication: Gastrooesophageal reflux disease
     Route: 048
     Dates: start: 20241029, end: 20241029
  5. Sinil folic acid [Concomitant]
     Indication: Rheumatoid arthritis
     Dosage: FOLIC ACID SINIL TAB 1MG,
     Route: 048
     Dates: start: 20240429
  6. BANAN [Concomitant]
     Active Substance: CEFPODOXIME PROXETIL
     Indication: Cystoscopy
     Route: 048
     Dates: start: 20250121, end: 20250124
  7. ATACAND [Concomitant]
     Active Substance: CANDESARTAN CILEXETIL
     Indication: Bladder cancer
     Dosage: ATACAND TAB 8MG
     Route: 048
     Dates: start: 20250219, end: 20250220
  8. DEXILANT [Concomitant]
     Active Substance: DEXLANSOPRAZOLE
     Indication: Gastrooesophageal reflux disease
     Dosage: STOP DATE TEXT: ONGOING, DEXILANT DR CAP 30MG
     Route: 048
     Dates: start: 20240429

REACTIONS (3)
  - Bladder cancer [Not Recovered/Not Resolved]
  - Cataract [Recovered/Resolved]
  - Glaucoma [Not Recovered/Not Resolved]

NARRATIVE: CASE EVENT DATE: 20241023
